FAERS Safety Report 9247112 (Version 4)
Quarter: 2015Q1

REPORT INFORMATION
  Report Type: Spontaneous
  Country: TR (occurrence: TR)
  Receive Date: 20130423
  Receipt Date: 20150209
  Transmission Date: 20150721
  Serious: Yes (Hospitalization, Other)
  Sender: FDA-Public Use
  Company Number: TR-AMGEN-TURSP2012066036

PATIENT
  Age: 47 Year
  Sex: Male
  Weight: 90 kg

DRUGS (10)
  1. METHOTREXATE [Concomitant]
     Active Substance: METHOTREXATE
     Dosage: 4 DF, WEEKLY
     Route: 048
     Dates: start: 2007, end: 201303
  2. FOLIC ACID. [Concomitant]
     Active Substance: FOLIC ACID
     Dosage: ^1X1^,TWICE WEEKLY
     Route: 048
     Dates: start: 2007
  3. ENBREL [Suspect]
     Active Substance: ETANERCEPT
     Dosage: 50 MG, QWK
     Route: 058
     Dates: start: 20110722, end: 2012
  4. ENBREL [Suspect]
     Active Substance: ETANERCEPT
     Dosage: 50 MG, WEEKLY
     Route: 058
     Dates: start: 201209, end: 20140309
  5. ENBREL [Suspect]
     Active Substance: ETANERCEPT
     Indication: PSORIATIC ARTHROPATHY
     Dosage: 25 MG, WEEKLY
     Route: 058
     Dates: start: 201208, end: 201209
  6. METHOTREXATE [Concomitant]
     Active Substance: METHOTREXATE
     Dosage: 6 DF, WEEKLY
     Route: 048
     Dates: start: 201303
  7. ENBREL [Suspect]
     Active Substance: ETANERCEPT
     Dosage: 50 MG, WEEKLY
     Route: 058
     Dates: start: 20140309, end: 201409
  8. FOLIC ACID. [Concomitant]
     Active Substance: FOLIC ACID
     Dosage: ^1X1^,TWICE WEEKLY
     Route: 048
     Dates: start: 2007
  9. DEPOCILLIN [Concomitant]
     Indication: CHRONIC SINUSITIS
     Dosage: ^1X1^, MONTHLY
     Route: 030
     Dates: start: 2003
  10. DEPOCILLIN [Concomitant]
     Indication: PHARYNGITIS

REACTIONS (5)
  - Nausea [Recovered/Resolved]
  - Arthralgia [Unknown]
  - Drug ineffective [Unknown]
  - Vomiting [Recovered/Resolved]
  - Pain [Not Recovered/Not Resolved]

NARRATIVE: CASE EVENT DATE: 201208
